FAERS Safety Report 4888099-X (Version None)
Quarter: 2006Q1

REPORT INFORMATION
  Report Type: 
  Country: None (occurrence: None)
  Receive Date: 20060119
  Receipt Date: 20051228
  Transmission Date: 20060701
  Serious: Yes (Other)
  Sender: FDA-Public Use
  Company Number: 2006000077

PATIENT
  Sex: Male
  Weight: 77.1115 kg

DRUGS (3)
  1. VIAGRA [Suspect]
     Indication: ERECTILE DYSFUNCTION
     Dosage: 50 MG (50 MG, PRN), ORAL
     Route: 048
     Dates: start: 19960101
  2. ANTIHYPERTENSIVES (ANTIHYPERTENSIVES) [Concomitant]
  3. CHOLESTEROL - AND TRIGLYCERIDE REDUCERS (CHOLESTEROL -  AND TRIGLYCERI [Concomitant]

REACTIONS (6)
  - BLOOD GLUCOSE INCREASED [None]
  - COLECTOMY [None]
  - CYANOPSIA [None]
  - DIABETES MELLITUS NON-INSULIN-DEPENDENT [None]
  - EYE DISORDER [None]
  - VISUAL ACUITY REDUCED [None]
